FAERS Safety Report 8818641 (Version 1)
Quarter: 2012Q4

REPORT INFORMATION
  Report Type: Spontaneous
  Country: US (occurrence: None)
  Receive Date: 20121002
  Receipt Date: 20121002
  Transmission Date: 20130627
  Serious: Yes (Other)
  Sender: FDA-Public Use
  Company Number: TPA2012A07063

PATIENT
  Age: 39 Year
  Sex: Female

DRUGS (2)
  1. EDARBI [Concomitant]
     Dosage: 80 mg, 1 in 1 D, Per Oral
     Route: 048
     Dates: start: 201206, end: 20120908
  2. HYDROCHLOROTHIAZIDE [Concomitant]

REACTIONS (1)
  - Vaginal haemorrhage [None]
